FAERS Safety Report 9719779 (Version 3)
Quarter: 2014Q1

REPORT INFORMATION
  Report Type: Spontaneous
  Country: IT (occurrence: IT)
  Receive Date: 20131128
  Receipt Date: 20140203
  Transmission Date: 20141002
  Serious: Yes (Other)
  Sender: FDA-Public Use
  Company Number: IT-RANBAXY-2013RR-75557

PATIENT
  Age: 28 Year
  Sex: Female
  Weight: 60 kg

DRUGS (2)
  1. AMOXICILLIN/CLAVULANIC ACID [Suspect]
     Indication: OROPHARYNGEAL PAIN
     Dosage: 1 G/DAY
     Route: 048
     Dates: start: 20131015, end: 20131015
  2. BENTELAN [Concomitant]
     Indication: OROPHARYNGEAL PAIN
     Dosage: 4 MG, UNK
     Route: 048
     Dates: start: 20131015, end: 20131015

REACTIONS (2)
  - Urticaria [Recovered/Resolved]
  - Laryngeal oedema [Recovered/Resolved]
